FAERS Safety Report 11135605 (Version 1)
Quarter: 2015Q2

REPORT INFORMATION
  Report Type: Spontaneous
  Country: US (occurrence: None)
  Receive Date: 20150522
  Receipt Date: 20150522
  Transmission Date: 20150821
  Serious: No
  Sender: FDA-Public Use
  Company Number: None

PATIENT
  Age: 56 Year
  Sex: Male

DRUGS (1)
  1. HUMIRA [Suspect]
     Active Substance: ADALIMUMAB
     Dates: start: 20150210, end: 20150507

REACTIONS (4)
  - Pain [None]
  - Treatment failure [None]
  - Psoriasis [None]
  - Inflammation [None]

NARRATIVE: CASE EVENT DATE: 20150507
